FAERS Safety Report 12157323 (Version 1)
Quarter: 2016Q1

REPORT INFORMATION
  Report Type: Spontaneous
  Country: US (occurrence: US)
  Receive Date: 20160308
  Receipt Date: 20160308
  Transmission Date: 20160526
  Serious: No
  Sender: FDA-Public Use
  Company Number: US-AMGEN-USASP2016026972

PATIENT
  Age: 48 Year
  Sex: Female

DRUGS (4)
  1. VITAMIN D                          /00107901/ [Concomitant]
     Active Substance: ERGOCALCIFEROL
  2. ENBREL [Suspect]
     Active Substance: ETANERCEPT
     Indication: RHEUMATOID ARTHRITIS
     Dosage: 50 MG, QWK
     Route: 058
     Dates: start: 2007
  3. FISH OIL [Concomitant]
     Active Substance: FISH OIL
  4. TURMERIC                           /01079601/ [Concomitant]
     Active Substance: TURMERIC

REACTIONS (2)
  - Influenza [Unknown]
  - Nasopharyngitis [Unknown]
